FAERS Safety Report 25229630 (Version 2)
Quarter: 2025Q3

REPORT INFORMATION
  Report Type: Spontaneous
  Country: CA (occurrence: CA)
  Receive Date: 20250423
  Receipt Date: 20250721
  Transmission Date: 20251020
  Serious: Yes (Other)
  Sender: MYLAN
  Company Number: CA-MYLANLABS-2025M1034266

PATIENT
  Age: 15 Year
  Sex: Female

DRUGS (15)
  1. ATORVASTATIN [Interacting]
     Active Substance: ATORVASTATIN
     Indication: Product used for unknown indication
  2. TACROLIMUS [Interacting]
     Active Substance: TACROLIMUS
     Indication: Prophylaxis against transplant rejection
  3. MYCOPHENOLATE MOFETIL [Interacting]
     Active Substance: MYCOPHENOLATE MOFETIL
     Indication: Prophylaxis against transplant rejection
  4. MYCOPHENOLATE MOFETIL [Interacting]
     Active Substance: MYCOPHENOLATE MOFETIL
     Indication: Immunosuppression
  5. AZITHROMYCIN [Interacting]
     Active Substance: AZITHROMYCIN
     Indication: Product used for unknown indication
  6. PANTOPRAZOLE SODIUM [Interacting]
     Active Substance: PANTOPRAZOLE SODIUM
     Indication: Product used for unknown indication
  7. PREDNISONE [Interacting]
     Active Substance: PREDNISONE
     Indication: Product used for unknown indication
  8. LANSOPRAZOLE [Interacting]
     Active Substance: LANSOPRAZOLE
     Indication: Product used for unknown indication
  9. SULFAMETHOXAZOLE\TRIMETHOPRIM [Interacting]
     Active Substance: SULFAMETHOXAZOLE\TRIMETHOPRIM
     Indication: Product used for unknown indication
  10. VORICONAZOLE [Interacting]
     Active Substance: VORICONAZOLE
     Indication: Fungal infection
  11. VORICONAZOLE [Interacting]
     Active Substance: VORICONAZOLE
     Indication: Antifungal prophylaxis
  12. PANTOPRAZOLE SODIUM ANHYDROUS [Interacting]
     Active Substance: PANTOPRAZOLE SODIUM ANHYDROUS
     Indication: Product used for unknown indication
  13. LANSOPRAZOLE [Interacting]
     Active Substance: LANSOPRAZOLE
     Indication: Product used for unknown indication
  14. AZITHROMYCIN ANHYDROUS [Interacting]
     Active Substance: AZITHROMYCIN ANHYDROUS
     Indication: Product used for unknown indication
  15. TACROLIMUS [Interacting]
     Active Substance: TACROLIMUS
     Indication: Immunosuppression

REACTIONS (7)
  - Solar lentigo [Not Recovered/Not Resolved]
  - Squamous cell carcinoma of skin [Not Recovered/Not Resolved]
  - Bowen^s disease [Unknown]
  - Photosensitivity reaction [Unknown]
  - Actinic keratosis [Unknown]
  - Photodermatosis [Unknown]
  - Drug interaction [Unknown]
